FAERS Safety Report 17700267 (Version 2)
Quarter: 2020Q4

REPORT INFORMATION
  Report Type: Report from Study
  Country: US (occurrence: US)
  Receive Date: 20200423
  Receipt Date: 20201106
  Transmission Date: 20210113
  Serious: Yes (Other)
  Sender: FDA-Public Use
  Company Number: US-JNJFOC-20190819523

PATIENT

DRUGS (2)
  1. REMICADE [Suspect]
     Active Substance: INFLIXIMAB
     Indication: RHEUMATOID ARTHRITIS
     Route: 042
  2. METHOTREXATE. [Concomitant]
     Active Substance: METHOTREXATE
     Indication: RHEUMATOID ARTHRITIS
     Dosage: 7.5 TO 25 MG PER WEEK
     Route: 065

REACTIONS (17)
  - Sarcoidosis [Unknown]
  - Bronchitis [Unknown]
  - Neoplasm malignant [Unknown]
  - Hepatotoxicity [Unknown]
  - Nasopharyngitis [Unknown]
  - Adverse event [Unknown]
  - Systemic lupus erythematosus [Unknown]
  - Hypersensitivity [Unknown]
  - Upper respiratory tract infection [Unknown]
  - Infection [Unknown]
  - Opportunistic infection [Unknown]
  - Pharyngitis [Unknown]
  - Rheumatoid arthritis [Unknown]
  - Cardiac failure congestive [Unknown]
  - Blood disorder [Unknown]
  - Drug specific antibody [Unknown]
  - Infusion related reaction [Unknown]
